FAERS Safety Report 6296008-4 (Version None)
Quarter: 2009Q3

REPORT INFORMATION
  Report Type: 
  Country: None (occurrence: None)
  Receive Date: 20090804
  Receipt Date: 20090720
  Transmission Date: 20100115
  Serious: Yes (Other)
  Sender: FDA-Public Use
  Company Number: AU-BRISTOL-MYERS SQUIBB COMPANY-14630396

PATIENT

DRUGS (1)
  1. ENTECAVIR [Suspect]
     Dosage: LATER 1MG/D

REACTIONS (1)
  - HEPATITIS B DNA INCREASED [None]
